FAERS Safety Report 16415280 (Version 1)
Quarter: 2019Q2

REPORT INFORMATION
  Report Type: Report from Study
  Country: SK (occurrence: SK)
  Receive Date: 20190611
  Receipt Date: 20190611
  Transmission Date: 20190711
  Serious: No
  Sender: FDA-Public Use
  Company Number: SK-JNJFOC-20190611248

PATIENT
  Age: 83 Year
  Sex: Female

DRUGS (1)
  1. STELARA [Suspect]
     Active Substance: USTEKINUMAB
     Indication: PSORIASIS
     Route: 058
     Dates: start: 20110204, end: 20190102

REACTIONS (5)
  - Hyperbilirubinaemia [Unknown]
  - Liver disorder [Unknown]
  - Spinal pain [Unknown]
  - Hyperuricaemia [Unknown]
  - Pancreatic disorder [Unknown]

NARRATIVE: CASE EVENT DATE: 20130327
